FAERS Safety Report 18550427 (Version 1)
Quarter: 2020Q4

REPORT INFORMATION
  Report Type: Spontaneous
  Country: NO (occurrence: NO)
  Receive Date: 20201126
  Receipt Date: 20201126
  Transmission Date: 20210114
  Serious: Yes (Other)
  Sender: FDA-Public Use
  Company Number: NO-SEPTODONT-202005982

PATIENT
  Age: 38 Year
  Sex: Male

DRUGS (6)
  1. CITANEST DENTAL OCTAPRESSIN [Concomitant]
     Active Substance: EPINEPHRINE\PRILOCAINE
     Indication: DENTAL LOCAL ANAESTHESIA
     Route: 004
     Dates: start: 20201105, end: 20201105
  2. CORSODYL [Concomitant]
     Active Substance: CHLORHEXIDINE GLUCONATE
     Indication: PREOPERATIVE CARE
     Dosage: ONE DOSE ADMINISTERED PREOPERATIVE
     Route: 002
     Dates: start: 20201105, end: 20201105
  3. HYDROGENPEROXID 1 % [Concomitant]
     Indication: PREOPERATIVE CARE
     Dosage: ONE DOSE ADMINISTERED PREOPERATIVE
     Route: 002
     Dates: start: 20201105, end: 20201105
  4. PARALGIN FORTE [CODEINE, PARACETAMOL] [Concomitant]
     Indication: PROCEDURAL PAIN
     Route: 048
     Dates: start: 20201105, end: 20201106
  5. SEPTOCAINE [Suspect]
     Active Substance: ARTICAINE HYDROCHLORIDE\EPINEPHRINE BITARTRATE
     Indication: DENTAL LOCAL ANAESTHESIA
     Route: 004
     Dates: start: 20201105, end: 20201105
  6. AUREOMYCIN [Concomitant]
     Active Substance: CHLORTETRACYCLINE HYDROCHLORIDE
     Indication: INFECTION PROPHYLAXIS
     Dosage: ONE DOSE ADMINISTERED ON GAZE
     Route: 002
     Dates: start: 20201105, end: 20201105

REACTIONS (3)
  - Pain in extremity [Recovered/Resolved]
  - Rash [Recovering/Resolving]
  - Oedema peripheral [Recovering/Resolving]

NARRATIVE: CASE EVENT DATE: 20201105
